FAERS Safety Report 13534818 (Version 2)
Quarter: 2017Q2

REPORT INFORMATION
  Report Type: Spontaneous
  Country: US (occurrence: US)
  Receive Date: 20170511
  Receipt Date: 20170524
  Transmission Date: 20170830
  Serious: Yes (Death, Other)
  Sender: FDA-Public Use
  Company Number: US-009507513-1705USA004455

PATIENT
  Age: 71 Year
  Sex: Male

DRUGS (3)
  1. KEYTRUDA [Suspect]
     Active Substance: PEMBROLIZUMAB
     Dosage: 1 DOSE, ONCE
     Route: 042
     Dates: start: 20170501, end: 20170501
  2. KEYTRUDA [Suspect]
     Active Substance: PEMBROLIZUMAB
     Dosage: 1 DOSE, ONCE
     Route: 042
     Dates: start: 20170410, end: 20170410
  3. KEYTRUDA [Suspect]
     Active Substance: PEMBROLIZUMAB
     Indication: LUNG CANCER METASTATIC
     Dosage: 1 DOSE, ONCE
     Route: 042
     Dates: start: 20170320, end: 20170320

REACTIONS (1)
  - Death [Fatal]

NARRATIVE: CASE EVENT DATE: 20170504
